FAERS Safety Report 5831565-0 (Version None)
Quarter: 2008Q3

REPORT INFORMATION
  Report Type: 
  Country: None (occurrence: None)
  Receive Date: 20080801
  Receipt Date: 20080723
  Transmission Date: 20090109
  Serious: Yes (Death)
  Sender: FDA-Public Use
  Company Number: US-PFIZER INC-2008062025

PATIENT
  Sex: Female
  Weight: 73.5 kg

DRUGS (15)
  1. REVATIO [Suspect]
     Indication: PULMONARY ARTERIAL HYPERTENSION
  2. METFORMIN HCL [Concomitant]
  3. HYDROCHLOROTHIAZIDE [Concomitant]
  4. PROTONIX [Concomitant]
  5. ADVAIR DISKUS 100/50 [Concomitant]
  6. COMBIVENT [Concomitant]
  7. LOTREL [Concomitant]
  8. PREDNISONE [Concomitant]
  9. CALCIUM CARBONATE [Concomitant]
  10. VITAMIN D [Concomitant]
  11. GABAPENTIN [Concomitant]
  12. GLIPIZIDE [Concomitant]
  13. FUROSEMIDE [Concomitant]
  14. LASIX [Concomitant]
  15. PERCOCET [Concomitant]
     Indication: PAIN

REACTIONS (1)
  - DEATH [None]
